FAERS Safety Report 10368434 (Version 1)
Quarter: 2014Q1

REPORT INFORMATION
  Report Type: Spontaneous
  Country: US (occurrence: None)
  Receive Date: 20140306
  Receipt Date: 20140306
  Transmission Date: 20141002
  Serious: Yes (Other)
  Sender: FDA-Public Use
  Company Number: 163-21880-13023205

PATIENT
  Age: 63 Year
  Sex: Male

DRUGS (2)
  1. REVLIMID (LENALIDOMIDE) (10 MILLIGRAM, CAPSULES) [Suspect]
     Indication: PLASMA CELL MYELOMA
     Route: 048
     Dates: start: 200807
  2. COUMADIN (WARFARIN SODIUM) [Concomitant]

REACTIONS (3)
  - Renal failure [None]
  - Plasma cell myeloma [None]
  - Diarrhoea [None]
